FAERS Safety Report 10075483 (Version 1)
Quarter: 2014Q2

REPORT INFORMATION
  Report Type: Spontaneous
  Country: US (occurrence: US)
  Receive Date: 20140414
  Receipt Date: 20140414
  Transmission Date: 20141212
  Serious: Yes (Other)
  Sender: FDA-Public Use
  Company Number: US-JNJFOC-20140403314

PATIENT
  Sex: Male

DRUGS (12)
  1. DURAGESIC [Suspect]
     Indication: FLANK PAIN
     Route: 065
     Dates: start: 2014
  2. DURAGESIC [Suspect]
     Indication: FLANK PAIN
     Route: 065
     Dates: start: 2014, end: 2014
  3. VICTOZA [Concomitant]
     Indication: DIABETES MELLITUS
     Route: 050
     Dates: start: 201307
  4. METFORMIN [Concomitant]
     Indication: DIABETES MELLITUS
     Route: 050
     Dates: start: 2013
  5. LYRICA [Concomitant]
     Indication: FIBROMYALGIA
     Dosage: INITIATED 8 TO 9 YEARS AGO
     Route: 050
  6. LYRICA [Concomitant]
     Indication: FIBROMYALGIA
     Dosage: DOSE INCREASED
     Route: 050
  7. WELCHOL [Concomitant]
     Dosage: 7 TO 8 YEARS AGO
     Route: 050
  8. PROTONIX [Concomitant]
     Indication: DYSPEPSIA
     Dosage: INITIATED TWENTY YEARS AGO
     Route: 050
  9. PERCOCET [Concomitant]
     Indication: BREAKTHROUGH PAIN
     Dosage: INITIATED SIX TO SEVEN YEARS AGO
     Route: 050
  10. TRAMADOL [Concomitant]
     Indication: BREAKTHROUGH PAIN
     Dosage: ON AND OFF FOR SIX OR SEVEN YEARS
     Route: 048
  11. FLECTOR PATCHES [Concomitant]
     Indication: PAIN
     Dosage: OFF AND ON FOR FIVE YEARS
     Route: 062
  12. ACETAMINOPHEN [Concomitant]
     Dosage: FOR THIRTY YEARS
     Route: 065

REACTIONS (7)
  - Breakthrough pain [Unknown]
  - Wrong technique in drug usage process [Unknown]
  - Product quality issue [Unknown]
  - Wrong technique in drug usage process [Unknown]
  - Product quality issue [Unknown]
  - Drug ineffective [Unknown]
  - Product outer packaging issue [Unknown]
